FAERS Safety Report 12337010 (Version 7)
Quarter: 2016Q2

REPORT INFORMATION
  Report Type: Spontaneous
  Country: US (occurrence: US)
  Receive Date: 20160505
  Receipt Date: 20160620
  Transmission Date: 20160815
  Serious: Yes (Other)
  Sender: FDA-Public Use
  Company Number: US-009507513-1604USA016993

PATIENT
  Sex: Female
  Weight: 57.6 kg

DRUGS (1)
  1. NEXPLANON [Suspect]
     Active Substance: ETONOGESTREL
     Indication: PRODUCT USED FOR UNKNOWN INDICATION
     Dosage: 1 ROD EVERY 3 YEARS
     Route: 059
     Dates: start: 201507, end: 20160603

REACTIONS (6)
  - Complication associated with device [Unknown]
  - Chest pain [Unknown]
  - Device dislocation [Recovered/Resolved]
  - Atelectasis [Unknown]
  - Device embolisation [Recovered/Resolved]
  - Surgery [Recovered/Resolved]

NARRATIVE: CASE EVENT DATE: 201507
